FAERS Safety Report 6965327-8 (Version None)
Quarter: 2010Q3

REPORT INFORMATION
  Report Type: 
  Country: None (occurrence: None)
  Receive Date: 20100903
  Receipt Date: 20100825
  Transmission Date: 20110219
  Serious: Yes (Death)
  Sender: FDA-Public Use
  Company Number: NL-TEVA-246416ISR

PATIENT
  Sex: Male

DRUGS (7)
  1. VINCRISTINE [Suspect]
     Indication: HODGKIN'S DISEASE
     Dates: end: 20100614
  2. PREDNISONE [Suspect]
     Indication: HODGKIN'S DISEASE
     Dates: start: 20100628, end: 20100704
  3. BLEOMYCIN SULFATE [Suspect]
     Indication: HODGKIN'S DISEASE
     Dates: start: 20100705, end: 20100705
  4. CYCLOPHOSPHAMIDE [Suspect]
     Indication: HODGKIN'S DISEASE
     Dates: start: 20100628, end: 20100628
  5. DOXORUBICIN HCL [Suspect]
     Indication: HODGKIN'S DISEASE
     Dates: start: 20100628, end: 20100628
  6. ETOPOSIDE [Suspect]
     Indication: HODGKIN'S DISEASE
     Dates: start: 20100628, end: 20100630
  7. PROCARBAZINE HYDROCHLORIDE [Suspect]
     Indication: HODGKIN'S DISEASE
     Dates: start: 20100628, end: 20100704

REACTIONS (1)
  - BRONCHOPULMONARY ASPERGILLOSIS [None]
